FAERS Safety Report 12492115 (Version 1)
Quarter: 2016Q2

REPORT INFORMATION
  Report Type: Spontaneous
  Country: NL (occurrence: NL)
  Receive Date: 20160623
  Receipt Date: 20160623
  Transmission Date: 20160815
  Serious: Yes (Hospitalization)
  Sender: FDA-Public Use
  Company Number: NL-SA-2016SA112842

PATIENT
  Age: 55 Year
  Sex: Female
  Weight: 62 kg

DRUGS (5)
  1. FABRAZYME [Suspect]
     Active Substance: AGALSIDASE BETA
     Indication: FABRY^S DISEASE
     Route: 041
     Dates: start: 20140506
  2. ATORVASTATIN [Concomitant]
     Active Substance: ATORVASTATIN
     Indication: PREMEDICATION
     Route: 048
  3. CARBASALATE CALCIUM [Concomitant]
     Active Substance: CARBASALATE
     Indication: PREMEDICATION
     Dates: start: 20160221
  4. PERINDOPRIL [Concomitant]
     Active Substance: PERINDOPRIL
     Indication: PREMEDICATION
     Route: 048
  5. CLOPIDOGREL [Concomitant]
     Active Substance: CLOPIDOGREL BISULFATE
     Route: 048
     Dates: start: 20160221

REACTIONS (8)
  - Clumsiness [Unknown]
  - Nausea [Unknown]
  - Presyncope [Recovered/Resolved]
  - Amnesia [Unknown]
  - Malaise [Unknown]
  - Transient ischaemic attack [Recovered/Resolved]
  - Dysarthria [Unknown]
  - Tremor [Unknown]

NARRATIVE: CASE EVENT DATE: 20160221
